FAERS Safety Report 19751105 (Version 3)
Quarter: 2022Q1

REPORT INFORMATION
  Report Type: Other
  Country: JP (occurrence: JP)
  Receive Date: 20210826
  Receipt Date: 20220104
  Transmission Date: 20220423
  Serious: Yes (Hospitalization, Other)
  Sender: FDA-Public Use
  Company Number: JP-CHUGAI-2021011017

PATIENT
  Age: 79 Year
  Sex: Male
  Weight: 57.1 kg

DRUGS (3)
  1. ENTRECTINIB [Suspect]
     Active Substance: ENTRECTINIB
     Indication: Non-small cell lung cancer
     Route: 048
     Dates: start: 20201229
  2. ENTRECTINIB [Suspect]
     Active Substance: ENTRECTINIB
     Route: 048
     Dates: start: 20210205, end: 20210208
  3. HERBALS [Suspect]
     Active Substance: HERBALS
     Indication: Product used for unknown indication
     Route: 065

REACTIONS (5)
  - Interstitial lung disease [Recovered/Resolved]
  - Renal impairment [Unknown]
  - Urinary incontinence [Unknown]
  - Diarrhoea [Unknown]
  - Constipation [Unknown]

NARRATIVE: CASE EVENT DATE: 20210205
